FAERS Safety Report 7470653-2 (Version None)
Quarter: 2011Q2

REPORT INFORMATION
  Report Type: 
  Country: None (occurrence: None)
  Receive Date: 20110429
  Receipt Date: 20110419
  Transmission Date: 20111010
  Serious: Yes (Disabling)
  Sender: FDA-Public Use
  Company Number: 899315

PATIENT
  Sex: Female
  Weight: 1.31 kg

DRUGS (2)
  1. GENTAMICIN [Concomitant]
  2. VANCOMYCIN HYDROCHLORIDE [Suspect]
     Indication: SEPSIS

REACTIONS (2)
  - HEARING IMPAIRED [None]
  - BRAIN STEM AUDITORY EVOKED RESPONSE ABNORMAL [None]
